FAERS Safety Report 7360168-4 (Version None)
Quarter: 2011Q1

REPORT INFORMATION
  Report Type: 
  Country: None (occurrence: None)
  Receive Date: 20110318
  Receipt Date: 20110314
  Transmission Date: 20110831
  Serious: No
  Sender: FDA-Public Use
  Company Number: US-PFIZER INC-2006099280

PATIENT
  Sex: Male
  Weight: 90.703 kg

DRUGS (9)
  1. SULFASALAZINE [Concomitant]
     Dosage: 4 G, 1X/DAY
     Route: 065
  2. MULTIVITAMIN [Concomitant]
     Route: 065
  3. HYDROCHLOROTHIAZIDE [Concomitant]
     Indication: HYPERTENSION
     Dosage: 12.5 MG, 1X/DAY
     Route: 048
  4. LISINOPRIL [Concomitant]
     Indication: HYPERTENSION
     Dosage: 10 MG, 1X/DAY
  5. LISINOPRIL [Concomitant]
     Dosage: 20 MG, 1X/DAY
     Route: 048
  6. MINERAL TAB [Concomitant]
     Route: 065
  7. LIPITOR [Suspect]
     Dosage: 10 MG, 1X/DAY
     Route: 048
     Dates: start: 20010101
  8. ASPIRIN [Concomitant]
     Dosage: 81 MG, 1X/DAY
     Route: 065
  9. HYDROCHLOROTHIAZIDE [Concomitant]
     Indication: FLUID RETENTION

REACTIONS (1)
  - HIGH DENSITY LIPOPROTEIN DECREASED [None]
